FAERS Safety Report 7627512-1 (Version None)
Quarter: 2011Q3

REPORT INFORMATION
  Report Type: 
  Country: None (occurrence: None)
  Receive Date: 20110721
  Receipt Date: 20110713
  Transmission Date: 20111222
  Serious: Yes (Hospitalization, Other)
  Sender: FDA-Public Use
  Company Number: JP-PFIZER INC-2011141662

PATIENT
  Age: 50 Year
  Sex: Female
  Weight: 76.9 kg

DRUGS (9)
  1. ORADOL [Suspect]
     Indication: PHARYNGITIS
     Dosage: UNK, ONCE AS NEEDED
     Route: 048
     Dates: start: 20110311
  2. TEGRETOL [Suspect]
     Indication: HYPOMANIA
     Dosage: 100 MG, 3X/DAY
     Route: 048
     Dates: start: 20100315, end: 20100329
  3. NICHOLASE [Suspect]
     Indication: PHARYNGITIS
     Dosage: 10 MG, 3X/DAY
     Route: 048
     Dates: start: 20110311, end: 20110315
  4. CLARITHROMYCIN [Suspect]
     Indication: PHARYNGITIS
     Dosage: 200 MG, 2X/DAY
     Route: 048
     Dates: start: 20110311, end: 20110315
  5. RISPERIDONE [Suspect]
     Indication: INSOMNIA
     Dosage: 1 MG, AS NEEDED
     Route: 048
     Dates: start: 20100312, end: 20100329
  6. SENNOSIDES [Suspect]
     Indication: CONSTIPATION
     Dosage: 24 MG, AS NEEDED
     Route: 048
     Dates: start: 20100326
  7. ZOLOFT [Suspect]
     Indication: BIPOLAR I DISORDER
     Dosage: 50 MG, 1X/DAY
     Route: 048
     Dates: start: 20100301, end: 20100301
  8. BISACODYL [Suspect]
     Indication: CONSTIPATION
     Dosage: 10 MG, AS NEEDED
     Dates: start: 20100326
  9. ROHIPNOL [Suspect]
     Indication: INSOMNIA
     Dosage: 2 MG, 1X/DAY
     Route: 048
     Dates: start: 20100310

REACTIONS (10)
  - RENAL DISORDER [None]
  - URINARY TRACT INFECTION [None]
  - NASOPHARYNGITIS [None]
  - SPLENOMEGALY [None]
  - OCULOMUCOCUTANEOUS SYNDROME [None]
  - HYPERTHERMIA [None]
  - BIPOLAR I DISORDER [None]
  - DYSPEPSIA [None]
  - LIVER DISORDER [None]
  - INSOMNIA [None]
